FAERS Safety Report 9366316 (Version 1)
Quarter: 2013Q2

REPORT INFORMATION
  Report Type: Spontaneous
  Country: US (occurrence: US)
  Receive Date: 20130625
  Receipt Date: 20130625
  Transmission Date: 20140414
  Serious: No
  Sender: FDA-Public Use
  Company Number: US-GLAXOSMITHKLINE-A0991455A

PATIENT
  Age: 82 Year
  Sex: Male

DRUGS (4)
  1. VERAMYST [Suspect]
     Indication: MULTIPLE ALLERGIES
     Dosage: 2SPR PER DAY
     Route: 045
  2. BABY ASPIRIN [Concomitant]
  3. OMEGA 3 FISH OIL [Concomitant]
  4. COFFEE [Concomitant]

REACTIONS (6)
  - Abdominal discomfort [Not Recovered/Not Resolved]
  - Flatulence [Unknown]
  - Abdominal distension [Unknown]
  - Discomfort [Unknown]
  - Oropharyngeal pain [Unknown]
  - Drug ineffective [Unknown]
